FAERS Safety Report 6736556-3 (Version None)
Quarter: 2010Q2

REPORT INFORMATION
  Report Type: 
  Country: None (occurrence: None)
  Receive Date: 20100521
  Receipt Date: 20100511
  Transmission Date: 20101027
  Serious: Yes (Hospitalization)
  Sender: FDA-Public Use
  Company Number: US-JNJFOC-20100504399

PATIENT
  Sex: Male
  Weight: 115.21 kg

DRUGS (13)
  1. REMICADE [Suspect]
     Indication: CROHN'S DISEASE
     Dosage: Q 6-8 WEEKS
     Route: 042
  2. REMICADE [Suspect]
     Dosage: Q 6-8 WEEKS
     Route: 042
  3. REMICADE [Suspect]
     Dosage: Q 6-8 WEEKS
     Route: 042
  4. IMURAN [Suspect]
     Indication: CROHN'S DISEASE
  5. MERCAPTOPURINE [Concomitant]
     Indication: CROHN'S DISEASE
  6. BENTYL [Concomitant]
     Indication: MUSCLE SPASMS
     Dosage: 10-20 MG
  7. AMITRIPTYLINE [Concomitant]
     Indication: MIGRAINE
  8. TOPAMAX [Concomitant]
     Indication: MIGRAINE
  9. CALTRATE [Concomitant]
  10. FLONASE [Concomitant]
     Indication: ASTHMA
     Route: 055
  11. ADVAIR DISKUS 100/50 [Concomitant]
     Indication: ASTHMA
     Dosage: 500/50
     Route: 055
  12. XOPENEX [Concomitant]
     Indication: ASTHMA
     Dosage: .62 MG
     Route: 055
  13. MULTI-VITAMINS [Concomitant]
     Indication: GENERAL PHYSICAL CONDITION

REACTIONS (15)
  - ABDOMINAL PAIN [None]
  - COLONOSCOPY [None]
  - CROHN'S DISEASE [None]
  - DIARRHOEA [None]
  - DYSSTASIA [None]
  - HAEMATEMESIS [None]
  - HAEMORRHAGE [None]
  - HEADACHE [None]
  - HOSPITALISATION [None]
  - INTRACRANIAL HYPOTENSION [None]
  - JOINT LOCK [None]
  - LOSS OF CONSCIOUSNESS [None]
  - MIGRAINE [None]
  - PAIN [None]
  - PREGNANCY OF PARTNER [None]
